FAERS Safety Report 25671283 (Version 1)
Quarter: 2025Q3

REPORT INFORMATION
  Report Type: Spontaneous
  Country: EU (occurrence: EU)
  Receive Date: 20250812
  Receipt Date: 20250812
  Transmission Date: 20251021
  Serious: Yes (Hospitalization, Other)
  Sender: BRISTOL-MYERS SQUIBB COMPANY
  Company Number: None

PATIENT
  Age: 70 Year
  Sex: Female

DRUGS (5)
  1. OPDIVO [Suspect]
     Active Substance: NIVOLUMAB
     Indication: Malignant melanoma
     Dosage: STRENGTH: 10 MG/ML?DOSAGE: 480 MG EVERY 4 WEEKS
     Route: 042
     Dates: start: 20250522, end: 20250522
  2. DIPYRONE [Concomitant]
     Active Substance: DIPYRONE
     Indication: Product used for unknown indication
     Dosage: 3X 2 TABLETS
     Route: 048
  3. PANTOPRAZOLE [Concomitant]
     Active Substance: PANTOPRAZOLE
     Indication: Product used for unknown indication
     Dosage: 40 MG IN THE MORNING
     Route: 048
  4. DORETA SR [Concomitant]
     Indication: Product used for unknown indication
     Dosage: STRENGTH: 75 MG/650 MG?DOSAGE: 1 TABLET EVERY 12 HOURS
     Route: 048
  5. SULFAMETHOXAZOLE\TRIMETHOPRIM [Concomitant]
     Active Substance: SULFAMETHOXAZOLE\TRIMETHOPRIM
     Indication: Product used for unknown indication
     Dosage: STRENGTH: 80 MG/400 MG ?DOSAGE: 1X1
     Route: 048

REACTIONS (3)
  - Immune-mediated enterocolitis [Recovering/Resolving]
  - Hypokalaemia [Unknown]
  - Diarrhoea [Recovering/Resolving]

NARRATIVE: CASE EVENT DATE: 20250101
